FAERS Safety Report 18928830 (Version 1)
Quarter: 2021Q1

REPORT INFORMATION
  Report Type: Spontaneous
  Country: US (occurrence: US)
  Receive Date: 20210223
  Receipt Date: 20210223
  Transmission Date: 20210420
  Serious: No
  Sender: FDA-Public Use
  Company Number: US-PFIZER INC-2021171287

PATIENT
  Age: 58 Year
  Sex: Male

DRUGS (3)
  1. INLYTA [Suspect]
     Active Substance: AXITINIB
     Indication: RENAL CANCER
     Dosage: 5 MG, 2X/DAY
     Route: 048
     Dates: start: 202101
  2. INLYTA [Suspect]
     Active Substance: AXITINIB
     Indication: URETERAL DISORDER
  3. INLYTA [Suspect]
     Active Substance: AXITINIB
     Indication: RENAL DISORDER

REACTIONS (1)
  - Fatigue [Unknown]
